FAERS Safety Report 19455699 (Version 1)
Quarter: 2021Q2

REPORT INFORMATION
  Report Type: Spontaneous
  Country: US (occurrence: US)
  Receive Date: 20210624
  Receipt Date: 20210624
  Transmission Date: 20210717
  Serious: No
  Sender: FDA-Public Use
  Company Number: None

PATIENT
  Age: 62 Year
  Sex: Female

DRUGS (16)
  1. EXTRA STRENGTH ACETAMINOPHEN [Concomitant]
     Active Substance: ACETAMINOPHEN
  2. MONTMORENCY CHERRY [Concomitant]
  3. LIOTHYRONINE [Concomitant]
     Active Substance: LIOTHYRONINE
  4. UBLIQUINOL [Concomitant]
  5. WARMING TOPICAL CONTAINING CAMPHOR AND MENTHOL [Concomitant]
  6. COOLING TOPICAL CONTAINING MENTHOL [Concomitant]
  7. ERGOCALCIFEROL. [Concomitant]
     Active Substance: ERGOCALCIFEROL
  8. CITRUCEL [Concomitant]
     Active Substance: METHYLCELLULOSE (4000 MPA.S)
  9. TAURINE [Concomitant]
     Active Substance: TAURINE
  10. SYNTHROID [Concomitant]
     Active Substance: LEVOTHYROXINE SODIUM
  11. VITAMIN B12 [Concomitant]
     Active Substance: CYANOCOBALAMIN
  12. PREDNISONE. [Suspect]
     Active Substance: PREDNISONE
     Indication: SCIATICA
     Route: 048
     Dates: start: 20210514, end: 20210518
  13. ELIQUIS [Concomitant]
     Active Substance: APIXABAN
  14. VITAMIN K2 MK4 AND MK7 [Concomitant]
  15. CALCIUM/MAGNESIUM/POTASSIUM/PHOSPHORUS [Concomitant]
  16. VITAMIN C WITH ROSE HIPS AND BIOFLAVONOIDS [Concomitant]

REACTIONS (12)
  - Renal failure [None]
  - Skin odour abnormal [None]
  - Fatigue [None]
  - Hepatic failure [None]
  - Hyperhidrosis [None]
  - Back pain [None]
  - Malaise [None]
  - Nightmare [None]
  - Sluggishness [None]
  - Abdominal distension [None]
  - Vision blurred [None]
  - Blood potassium decreased [None]

NARRATIVE: CASE EVENT DATE: 20210514
